FAERS Safety Report 18735748 (Version 4)
Quarter: 2021Q1

REPORT INFORMATION
  Report Type: Spontaneous
  Country: US (occurrence: US)
  Receive Date: 20210113
  Receipt Date: 20210226
  Transmission Date: 20210419
  Serious: Yes (Other)
  Sender: FDA-Public Use
  Company Number: US-PFIZER INC-2020397391

PATIENT
  Age: 82 Year
  Sex: Female

DRUGS (2)
  1. TOVIAZ [Suspect]
     Active Substance: FESOTERODINE FUMARATE
     Dosage: UNK
  2. PREMARIN [Suspect]
     Active Substance: ESTROGENS, CONJUGATED
     Dosage: UNK

REACTIONS (8)
  - Hypertension [Unknown]
  - Hand fracture [Unknown]
  - Cardiac disorder [Unknown]
  - Dry mouth [Unknown]
  - Fall [Unknown]
  - Hypoaesthesia [Unknown]
  - Wrist fracture [Unknown]
  - Arterial disorder [Unknown]

NARRATIVE: CASE EVENT DATE: 202012
